FAERS Safety Report 7979851-2 (Version None)
Quarter: 2011Q4

REPORT INFORMATION
  Report Type: 
  Country: None (occurrence: None)
  Receive Date: 20111214
  Receipt Date: 20111212
  Transmission Date: 20120403
  Serious: Yes (Hospitalization)
  Sender: FDA-Public Use
  Company Number: FI-ROCHE-1020567

PATIENT
  Sex: Female

DRUGS (19)
  1. NAPROMETIN [Concomitant]
     Route: 048
  2. MABTHERA [Suspect]
     Dates: start: 20090331
  3. VITAMIN A PALMITATE [Concomitant]
  4. PNEUMOVAX 23 [Concomitant]
  5. DEPRAKINE [Concomitant]
     Route: 048
  6. MABTHERA [Suspect]
     Indication: RHEUMATOID ARTHRITIS
     Route: 042
     Dates: start: 20090317
  7. PREDNISOLONE [Concomitant]
     Route: 048
  8. PREDNISOLONE [Concomitant]
  9. THYROXIN [Concomitant]
     Route: 048
  10. ACETAMINOPHEN [Concomitant]
     Route: 048
  11. LANSOPRAZOLE [Concomitant]
     Route: 048
  12. FLUARIX [Concomitant]
  13. MABTHERA [Suspect]
     Dates: start: 20100215
  14. SIBICORT [Concomitant]
  15. OXIKLORIN [Concomitant]
     Route: 048
     Dates: end: 20111102
  16. MABTHERA [Suspect]
     Dates: start: 20110309
  17. MABTHERA [Suspect]
     Dates: start: 20100303
  18. MABTHERA [Suspect]
     Dates: start: 20110223
  19. TREXAN (FINLAND) [Concomitant]
     Route: 048
     Dates: end: 20111102

REACTIONS (3)
  - NEUTROPENIA [None]
  - LEUKOPENIA [None]
  - PYREXIA [None]
